FAERS Safety Report 4986131-6 (Version None)
Quarter: 2006Q1

REPORT INFORMATION
  Report Type: 
  Country: None (occurrence: None)
  Receive Date: 20060309
  Receipt Date: 20050815
  Transmission Date: 20060701
  Serious: Yes (Hospitalization)
  Sender: FDA-Public Use
  Company Number: 414565

PATIENT
  Age: 21 Year
  Sex: Male

DRUGS (2)
  1. ACCUTANE [Suspect]
     Indication: ACNE
     Dosage: ORAL
     Route: 048
  2. MELATONIN (MELATONIN) [Concomitant]

REACTIONS (4)
  - DRY SKIN [None]
  - LIP EXFOLIATION [None]
  - NAUSEA [None]
  - PANCREATITIS ACUTE [None]
